FAERS Safety Report 9579903 (Version 2)
Quarter: 2014Q1

REPORT INFORMATION
  Report Type: Spontaneous
  Country: FR (occurrence: None)
  Receive Date: 20130930
  Receipt Date: 20140312
  Transmission Date: 20141002
  Serious: Yes (Other)
  Sender: FDA-Public Use
  Company Number: 2013DE0377

PATIENT
  Sex: 0

DRUGS (1)
  1. KINERET [Suspect]

REACTIONS (3)
  - Growth retardation [None]
  - Foetal growth restriction [None]
  - Foetal exposure during pregnancy [None]
